FAERS Safety Report 5497955-3 (Version None)
Quarter: 2007Q4

REPORT INFORMATION
  Report Type: 
  Country: None (occurrence: None)
  Receive Date: 20071025
  Receipt Date: 20071018
  Transmission Date: 20080405
  Serious: Yes (Life-Threatening)
  Sender: FDA-Public Use
  Company Number: BR-SANOFI-SYNTHELABO-A01200711826

PATIENT
  Age: 30 Year
  Sex: Female

DRUGS (6)
  1. RADIOTHERAPY [Concomitant]
     Dosage: UNK
  2. ZOFRAN [Concomitant]
     Dosage: 16 MG
     Route: 042
     Dates: start: 20070730
  3. LEUCOVORIN [Concomitant]
     Indication: RECTAL NEOPLASM
     Route: 041
     Dates: start: 20070730, end: 20070730
  4. FLUOROURACIL [Concomitant]
     Indication: RECTAL NEOPLASM
     Dosage: UNK
     Route: 040
     Dates: start: 20070730, end: 20070730
  5. FLUOROURACIL [Concomitant]
     Route: 041
     Dates: start: 20070730, end: 20070731
  6. ELOXATIN [Suspect]
     Indication: RECTAL NEOPLASM
     Route: 041
     Dates: start: 20070730, end: 20070730

REACTIONS (3)
  - CARDIAC FAILURE ACUTE [None]
  - CARDIOGENIC SHOCK [None]
  - CARDIOMYOPATHY ACUTE [None]
